FAERS Safety Report 8294398-4 (Version None)
Quarter: 2012Q2

REPORT INFORMATION
  Report Type: 
  Country: None (occurrence: None)
  Receive Date: 20120418
  Receipt Date: 20120413
  Transmission Date: 20120825
  Serious: Yes (Other)
  Sender: FDA-Public Use
  Company Number: VE-PFIZER INC-2011064074

PATIENT
  Age: 67 Year
  Sex: Female

DRUGS (4)
  1. CALCIUM [Concomitant]
     Dosage: 1500 MG, 1X/DAY
     Route: 048
  2. LIPITOR [Suspect]
     Indication: CARDIAC DISORDER
     Dosage: 40 MG, 1X/DAY
     Route: 048
     Dates: start: 20100901
  3. ASPIRIN [Concomitant]
     Dosage: 1X/DAY
     Route: 048
  4. IRBESARTAN [Concomitant]
     Dosage: 300/12.5 MG, 1X/DAY
     Route: 048

REACTIONS (2)
  - CARDIAC OPERATION [None]
  - CATHETERISATION CARDIAC [None]
